FAERS Safety Report 9139554 (Version 3)
Quarter: 2013Q2

REPORT INFORMATION
  Report Type: Spontaneous
  Country: JP (occurrence: JP)
  Receive Date: 20130305
  Receipt Date: 20130606
  Transmission Date: 20140414
  Serious: Yes (Hospitalization)
  Sender: FDA-Public Use
  Company Number: JP-ELI_LILLY_AND_COMPANY-JP201301002624

PATIENT
  Age: 65 Year
  Sex: Female

DRUGS (2)
  1. FORTEO [Suspect]
     Indication: OSTEOPOROSIS
     Dosage: UNK
     Route: 058
     Dates: start: 20130106
  2. CALCIUM [Concomitant]

REACTIONS (4)
  - Compression fracture [Unknown]
  - Bone density decreased [Unknown]
  - Incorrect storage of drug [Recovered/Resolved]
  - Medication error [Unknown]
